FAERS Safety Report 7039158-7 (Version None)
Quarter: 2010Q4

REPORT INFORMATION
  Report Type: 
  Country: None (occurrence: None)
  Receive Date: 20101012
  Receipt Date: 20100930
  Transmission Date: 20110411
  Serious: Yes (Hospitalization, Other)
  Sender: FDA-Public Use
  Company Number: PHHY2009DE54655

PATIENT
  Sex: Male
  Weight: 24 kg

DRUGS (2)
  1. RITALIN T09447+ERCAP [Suspect]
     Indication: ATTENTION DEFICIT/HYPERACTIVITY DISORDER
     Dosage: 20 MG, QD
     Route: 048
     Dates: start: 20091102, end: 20091130
  2. MEDIKINET [Concomitant]
     Dosage: 15 MG, QD
     Dates: start: 20080101

REACTIONS (3)
  - DECREASED ACTIVITY [None]
  - DECREASED APPETITE [None]
  - SOMNOLENCE [None]
